FAERS Safety Report 5076580-2 (Version None)
Quarter: 2006Q3

REPORT INFORMATION
  Report Type: 
  Country: None (occurrence: None)
  Receive Date: 20060725
  Receipt Date: 20060330
  Transmission Date: 20061208
  Serious: No
  Sender: FDA-Public Use
  Company Number: 200612028BWH

PATIENT
  Age: 82 Year
  Sex: Male

DRUGS (9)
  1. NEXAVAR [Suspect]
     Indication: RENAL CELL CARCINOMA STAGE UNSPECIFIED
     Dosage: 400 MG, BID, ORAL; SEE IMAGE
     Route: 048
     Dates: start: 20060303, end: 20060309
  2. NEXAVAR [Suspect]
     Indication: RENAL CELL CARCINOMA STAGE UNSPECIFIED
     Dosage: 400 MG, BID, ORAL; SEE IMAGE
     Route: 048
     Dates: start: 20060317, end: 20060404
  3. ATENOLOL [Concomitant]
  4. VALSARTAN [Concomitant]
  5. HYDROCHLOROTHIAZIDE [Concomitant]
  6. GLIPIZIDE [Concomitant]
  7. OMEPRAZOLE [Concomitant]
  8. VALIUM [Concomitant]
  9. LOVASTATIN [Concomitant]

REACTIONS (3)
  - BLISTER [None]
  - BLOOD PRESSURE INCREASED [None]
  - PAIN IN EXTREMITY [None]
